FAERS Safety Report 18025038 (Version 4)
Quarter: 2021Q1

REPORT INFORMATION
  Report Type: Spontaneous
  Country: US (occurrence: US)
  Receive Date: 20200715
  Receipt Date: 20210219
  Transmission Date: 20210419
  Serious: Yes (Other)
  Sender: FDA-Public Use
  Company Number: US-PFIZER INC-2020270433

PATIENT
  Age: 70 Year
  Sex: Female

DRUGS (1)
  1. XELJANZ [Suspect]
     Active Substance: TOFACITINIB CITRATE
     Indication: RHEUMATOID ARTHRITIS
     Dosage: 5 MG, 2X/DAY
     Route: 048
     Dates: start: 202003

REACTIONS (8)
  - Pain [Unknown]
  - Vomiting [Unknown]
  - Blood pressure increased [Recovering/Resolving]
  - Coronavirus infection [Unknown]
  - Discouragement [Unknown]
  - Depression [Unknown]
  - Gait inability [Unknown]
  - Intentional dose omission [Unknown]

NARRATIVE: CASE EVENT DATE: 202009
